FAERS Safety Report 8017600-2 (Version None)
Quarter: 2012Q1

REPORT INFORMATION
  Report Type: 
  Country: None (occurrence: None)
  Receive Date: 20120103
  Receipt Date: 20111226
  Transmission Date: 20120608
  Serious: Yes (Death)
  Sender: FDA-Public Use
  Company Number: JP-GENZYME-THYM-1003053

PATIENT
  Sex: Female
  Weight: 50 kg

DRUGS (8)
  1. AZASETRON HYDROCHLORIDE [Concomitant]
     Indication: NAUSEA
     Dosage: 10 MG, UNK
     Route: 065
     Dates: start: 20090514, end: 20090517
  2. THYMOGLOBULIN [Suspect]
     Indication: BONE MARROW CONDITIONING REGIMEN
     Dosage: 100 MG, QD
     Route: 042
     Dates: start: 20090515, end: 20090518
  3. METHYLPREDNISOLONE SODIUM SUCCINATE [Concomitant]
     Indication: PREMEDICATION
     Dosage: 60 MG, UNK
     Route: 065
     Dates: start: 20090515, end: 20090515
  4. CHLORPHENIRAMINE MALEATE [Concomitant]
     Indication: PREMEDICATION
     Dosage: 5 MG, UNK
     Route: 065
     Dates: start: 20090515, end: 20090515
  5. CYCLOPHOSPHAMIDE [Concomitant]
     Indication: APLASTIC ANAEMIA
     Dosage: 700 MG, UNK
     Route: 065
     Dates: start: 20090514, end: 20090517
  6. SULPYRINE [Concomitant]
     Indication: PREMEDICATION
     Dosage: 250 MG, UNK
     Route: 065
     Dates: start: 20090515, end: 20090515
  7. MICAFUNGIN SODIUM [Concomitant]
     Indication: ANTIFUNGAL PROPHYLAXIS
     Dosage: 50 MG, UNK
     Dates: start: 20090513, end: 20090623
  8. FLUDARABINE PHOSPHATE [Concomitant]
     Indication: APLASTIC ANAEMIA
     Dosage: 50 MG, UNK
     Route: 065
     Dates: start: 20090514, end: 20090517

REACTIONS (1)
  - POST TRANSPLANT LYMPHOPROLIFERATIVE DISORDER [None]
